FAERS Safety Report 8243788-4 (Version None)
Quarter: 2012Q1

REPORT INFORMATION
  Report Type: 
  Country: None (occurrence: None)
  Receive Date: 20120329
  Receipt Date: 20120315
  Transmission Date: 20120608
  Serious: No
  Sender: FDA-Public Use
  Company Number: US-MYLANLABS-2011S1022995

PATIENT
  Age: 61 Year
  Sex: Female

DRUGS (3)
  1. LITHIUM CARBONATE [Concomitant]
     Indication: BIPOLAR DISORDER
     Route: 048
  2. EMSAM [Suspect]
     Indication: BIPOLAR DISORDER
     Route: 062
     Dates: start: 20110401, end: 20111001
  3. LORAZEPAM [Concomitant]
     Indication: GENERALISED ANXIETY DISORDER
     Route: 048

REACTIONS (4)
  - APPLICATION SITE SCAR [None]
  - MIDDLE INSOMNIA [None]
  - APPLICATION SITE DISCOLOURATION [None]
  - APPLICATION SITE REACTION [None]
